FAERS Safety Report 7038227-5 (Version None)
Quarter: 2010Q4

REPORT INFORMATION
  Report Type: 
  Country: None (occurrence: None)
  Receive Date: 20101011
  Receipt Date: 20091023
  Transmission Date: 20110411
  Serious: No
  Sender: FDA-Public Use
  Company Number: US-PFIZER INC-2009289871

PATIENT
  Sex: Female

DRUGS (4)
  1. GABAPENTIN [Suspect]
     Indication: DIABETIC NEUROPATHY
     Dosage: 100 MG, 3X/DAY
  2. GABAPENTIN [Suspect]
     Indication: PAIN IN EXTREMITY
  3. LYRICA [Suspect]
     Indication: DIABETIC NEUROPATHY
     Dosage: 75 MG, 2X/DAY
  4. LYRICA [Suspect]
     Indication: PAIN IN EXTREMITY

REACTIONS (2)
  - DIZZINESS [None]
  - DRUG INEFFECTIVE [None]
